FAERS Safety Report 9566515 (Version 2)
Quarter: 2013Q4

REPORT INFORMATION
  Report Type: Spontaneous
  Country: US (occurrence: US)
  Receive Date: 20130930
  Receipt Date: 20131017
  Transmission Date: 20140711
  Serious: Yes (Other)
  Sender: FDA-Public Use
  Company Number: US-BAXTER-2013BAX037627

PATIENT
  Age: 12 Year
  Sex: Female

DRUGS (1)
  1. DIANEAL PD2 [Suspect]
     Indication: PERITONEAL DIALYSIS
     Route: 033
     Dates: start: 20100927

REACTIONS (5)
  - Peritonitis bacterial [Recovered/Resolved]
  - Peritonitis [Recovered/Resolved]
  - Skin infection [Unknown]
  - Catheter site discharge [Unknown]
  - Scab [Unknown]
